FAERS Safety Report 8456715-1 (Version None)
Quarter: 2012Q2

REPORT INFORMATION
  Report Type: 
  Country: None (occurrence: None)
  Receive Date: 20120621
  Receipt Date: 20120618
  Transmission Date: 20120825
  Serious: Yes (Disabling, Other)
  Sender: FDA-Public Use
  Company Number: BR-BAYER-2012-060437

PATIENT
  Age: 58 Year
  Sex: Female

DRUGS (4)
  1. INFLUENZA VACCINE [Concomitant]
     Indication: IMMUNODEFICIENCY
     Dosage: UNK UNK, ONCE
     Dates: start: 20120501
  2. BETASERON [Suspect]
     Indication: SECONDARY PROGRESSIVE MULTIPLE SCLEROSIS
     Dosage: 1 ML, QOD
     Route: 058
     Dates: start: 20080101
  3. AMITRIPTYLINE HCL [Concomitant]
     Indication: DEPRESSION
     Dosage: 1 DF, QD
     Route: 048
     Dates: start: 20080101
  4. BACLOFEN [Concomitant]
     Indication: JOINT STIFFNESS
     Dosage: 1 DF, QD
     Route: 048

REACTIONS (18)
  - INSOMNIA [None]
  - MYALGIA [None]
  - MEMORY IMPAIRMENT [None]
  - SPINAL DISORDER [None]
  - FALL [None]
  - INFLUENZA [None]
  - OSTEOARTHRITIS [None]
  - ABDOMINAL PAIN UPPER [None]
  - FEAR [None]
  - SALIVARY HYPERSECRETION [None]
  - MUSCULAR WEAKNESS [None]
  - IMMUNODEFICIENCY [None]
  - PANIC REACTION [None]
  - GRIP STRENGTH DECREASED [None]
  - IMPATIENCE [None]
  - LIMB INJURY [None]
  - RETCHING [None]
  - NAUSEA [None]
